FAERS Safety Report 21691143 (Version 2)
Quarter: 2022Q4

REPORT INFORMATION
  Report Type: Report from Study
  Country: EG (occurrence: EG)
  Receive Date: 20221207
  Receipt Date: 20221228
  Transmission Date: 20230112
  Serious: Yes (Other)
  Sender: FDA-Public Use
  Company Number: EG-002147023-NVSC2022EG281697

PATIENT
  Sex: Female

DRUGS (5)
  1. GILENYA [Suspect]
     Active Substance: FINGOLIMOD HYDROCHLORIDE
     Indication: Multiple sclerosis
     Dosage: 1 DOSAGE FORM, QD (START DATE: NOV 2020 OR DEC 2020, STOP DATE: NOV 2021 OR DEC 2021)
     Route: 048
  2. VIDROP [Concomitant]
     Indication: Vitamin supplementation
     Dosage: UNK (ONE BOTTLE EVERY WEEK)
     Route: 048
     Dates: start: 2017
  3. GAPTIN [Concomitant]
     Indication: Neuritis
     Dosage: UNK UNK, QD
     Route: 048
     Dates: start: 2016
  4. TEGRETOL [Concomitant]
     Active Substance: CARBAMAZEPINE
     Indication: Nerve injury
     Dosage: UNK UNK, QD
     Route: 048
     Dates: start: 2016
  5. SOFENACIN [Concomitant]
     Indication: Urinary incontinence
     Dosage: UNK UNK, QD
     Route: 048
     Dates: start: 2017

REACTIONS (8)
  - Depression [Not Recovered/Not Resolved]
  - Insomnia [Not Recovered/Not Resolved]
  - Gait disturbance [Not Recovered/Not Resolved]
  - Tremor [Not Recovered/Not Resolved]
  - Disturbance in attention [Not Recovered/Not Resolved]
  - Muscular weakness [Not Recovered/Not Resolved]
  - Mobility decreased [Not Recovered/Not Resolved]
  - Fatigue [Not Recovered/Not Resolved]

NARRATIVE: CASE EVENT DATE: 20200101
